FAERS Safety Report 13577824 (Version 4)
Quarter: 2017Q3

REPORT INFORMATION
  Report Type: Report from Study
  Country: None (occurrence: CA)
  Receive Date: 20170524
  Receipt Date: 20170712
  Transmission Date: 20171127
  Serious: Yes (Other)
  Sender: FDA-Public Use
  Company Number: CA-ABBVIE-17K-028-1971502-00

PATIENT
  Sex: Female

DRUGS (1)
  1. HUMIRA [Suspect]
     Active Substance: ADALIMUMAB
     Indication: CROHN^S DISEASE
     Route: 058
     Dates: start: 20090424

REACTIONS (8)
  - Purulent discharge [Not Recovered/Not Resolved]
  - Haemoglobin increased [Unknown]
  - Tenderness [Unknown]
  - Pruritus [Unknown]
  - Scab [Unknown]
  - Contusion [Unknown]
  - Blood iron increased [Unknown]
  - Malignant melanoma [Unknown]

NARRATIVE: CASE EVENT DATE: 2017
